FAERS Safety Report 9538257 (Version 3)
Quarter: 2013Q4

REPORT INFORMATION
  Report Type: Report from Study
  Country: JP (occurrence: JP)
  Receive Date: 20130920
  Receipt Date: 20131124
  Transmission Date: 20140711
  Serious: Yes (Hospitalization, Other)
  Sender: FDA-Public Use
  Company Number: JP-009507513-1303JPN007534

PATIENT
  Sex: Female

DRUGS (9)
  1. ISENTRESS TABLETS 400MG [Suspect]
     Indication: HIV INFECTION
     Dosage: 800 MG, DIVIDED DOSE FREQUENCY UNKNOWN
     Route: 064
     Dates: start: 20111101, end: 20120226
  2. VIREAD [Suspect]
     Indication: HIV INFECTION
     Dosage: 300 MG, QD
     Route: 064
     Dates: start: 20120305
  3. VIREAD [Suspect]
     Dosage: 300 MG, QD
     Route: 064
     Dates: start: 2010, end: 20111127
  4. ZIAGEN [Suspect]
     Indication: HIV INFECTION
     Dosage: 300 MG, BID, FORMULATION: POR
     Route: 064
     Dates: start: 20111128, end: 20120620
  5. KALETRA [Suspect]
     Indication: HIV INFECTION
     Dosage: 400 MG, BID, FORMULATION: POR
     Route: 064
     Dates: start: 20100816, end: 20120820
  6. INDACIN-R [Suspect]
     Indication: PATENT DUCTUS ARTERIOSUS
     Dosage: 0.44 ML, QD
     Dates: start: 20120330, end: 20120401
  7. ZIDOVUDINE [Suspect]
     Indication: ANAEMIA
     Dosage: BID, AMOUNT OF 1 ONCE ADMINSTRATION: 4-5 MG/KG
     Dates: start: 20120328, end: 20120510
  8. RETROVIR [Suspect]
     Dosage: FORMULATION: POR, DAILY DOSAGE UNKNOWN
  9. CALCICOL [Concomitant]
     Indication: RENAL TUBULAR DISORDER
     Dosage: IT IS A DIVIDED DOSE FREQUENCY U DURING 5.0-5.1 ML/KG/DAY
     Dates: start: 20120329, end: 20120411

REACTIONS (7)
  - Foetal growth restriction [Recovering/Resolving]
  - Renal tubular disorder [Recovered/Resolved]
  - Patent ductus arteriosus [Recovered/Resolved]
  - Polycythaemia [Recovering/Resolving]
  - Anaemia [Recovered/Resolved]
  - Developmental delay [Not Recovered/Not Resolved]
  - Foetal exposure during pregnancy [Recovered/Resolved]
